FAERS Safety Report 9150951 (Version 1)
Quarter: 2013Q1

REPORT INFORMATION
  Report Type: Spontaneous
  Country: US (occurrence: US)
  Receive Date: 20130308
  Receipt Date: 20130308
  Transmission Date: 20140127
  Serious: No
  Sender: FDA-Public Use
  Company Number: US-GLAXOSMITHKLINE-A0974625A

PATIENT
  Age: 56 Year
  Sex: Female

DRUGS (5)
  1. LUXIQ [Suspect]
     Indication: KERATOSIS PILARIS
     Dosage: 1APP FIVE TIMES PER WEEK
     Route: 061
     Dates: start: 200812
  2. OLUX E [Suspect]
     Indication: LICHEN PLANUS
     Dosage: 1APP TWO TIMES PER WEEK
     Route: 061
     Dates: start: 200812
  3. VAGIFEM [Concomitant]
  4. VITAMIN [Concomitant]
  5. FISH OIL [Concomitant]

REACTIONS (3)
  - Drug ineffective [Unknown]
  - Product quality issue [Unknown]
  - Incorrect storage of drug [Unknown]
